FAERS Safety Report 23322776 (Version 4)
Quarter: 2024Q1

REPORT INFORMATION
  Report Type: Spontaneous
  Country: US (occurrence: None)
  Receive Date: 20231220
  Receipt Date: 20240305
  Transmission Date: 20240410
  Serious: Yes (Death, Hospitalization, Other)
  Sender: FDA-Public Use
  Company Number: 2023A288644

PATIENT
  Age: 77 Year
  Sex: Male
  Weight: 77.1 kg

DRUGS (25)
  1. CRESTOR [Suspect]
     Active Substance: ROSUVASTATIN CALCIUM
     Indication: Hyperlipidaemia
     Route: 048
     Dates: start: 20231020
  2. GALLIUM GA-68 GOZETOTIDE [Suspect]
     Active Substance: GALLIUM GA-68 GOZETOTIDE
     Indication: Hormone-dependent prostate cancer
     Dosage: 5.77 MCI ONCE/SINGLE ADMINISTRATION
     Route: 042
     Dates: start: 20230414, end: 20230414
  3. LUTETIUM LU-177 VIPIVOTIDE TETRAXETAN [Suspect]
     Active Substance: LUTETIUM LU-177 VIPIVOTIDE TETRAXETAN
     Indication: Hormone-dependent prostate cancer
     Dosage: 206.7 MCI ONCE/SINGLE ADMINISTRATION
     Route: 042
     Dates: start: 20230518
  4. TYLENOL [Concomitant]
     Active Substance: ACETAMINOPHEN
     Dates: start: 2010
  5. ASPIRIN [Concomitant]
     Active Substance: ASPIRIN
     Dates: start: 2015
  6. PSYLLIUM [Concomitant]
     Active Substance: PLANTAGO SEED
     Dates: start: 2018
  7. COENZYME Q10 [Concomitant]
     Active Substance: DIETARY SUPPLEMENT\UBIDECARENONE
     Dates: start: 2020
  8. FLONASE [Concomitant]
     Active Substance: FLUTICASONE PROPIONATE
     Dates: start: 2020
  9. VITAMIN B2 [Concomitant]
     Active Substance: RIBOFLAVIN
     Dates: start: 2020
  10. VITAMIN D3 [Concomitant]
     Active Substance: CHOLECALCIFEROL
     Dates: start: 2022
  11. VENLAFAXINE [Concomitant]
     Active Substance: VENLAFAXINE HYDROCHLORIDE
     Dates: start: 20230314
  12. ABIRATERONE [Concomitant]
     Active Substance: ABIRATERONE
     Dates: start: 20230405
  13. LEUPROLIDE ACETATE [Concomitant]
     Active Substance: ISOPROPYL ALCOHOL\LEUPROLIDE ACETATE
     Dates: start: 20230523
  14. OPIUM TINCTURE [Concomitant]
     Active Substance: MORPHINE
     Dates: start: 20230920
  15. LOMOTIL [Concomitant]
     Active Substance: ATROPINE SULFATE\DIPHENOXYLATE HYDROCHLORIDE
     Dates: start: 20230921
  16. CALCIUM [Concomitant]
     Active Substance: CALCIUM
     Dates: start: 20231013
  17. MELATONIN [Concomitant]
     Active Substance: MELATONIN
     Dates: start: 20231013
  18. OFEV [Concomitant]
     Active Substance: NINTEDANIB
     Dates: start: 20231021
  19. ALLOPURINOL [Concomitant]
     Active Substance: ALLOPURINOL
     Dates: start: 20231027
  20. PHOSPHORUS [Concomitant]
     Active Substance: PHOSPHORUS
     Dates: start: 20231027
  21. PREDNISONE [Concomitant]
     Active Substance: PREDNISONE
     Dates: start: 20231027
  22. MIRALAX [Concomitant]
     Active Substance: POLYETHYLENE GLYCOL 3350
     Dates: start: 20231113, end: 20231113
  23. KLOR-CON [Concomitant]
     Active Substance: POTASSIUM CHLORIDE
     Dates: start: 20231113, end: 20231113
  24. SENOKOT [Concomitant]
     Active Substance: SENNOSIDES
     Dates: start: 20231113, end: 20231119
  25. K PHOS NEUTRAL [Concomitant]
     Active Substance: POTASSIUM PHOSPHATE, MONOBASIC\SODIUM PHOSPHATE, DIBASIC, ANHYDROUS\SODIUM PHOSPHATE, MONOBASIC, MON
     Dates: start: 20231113, end: 20231114

REACTIONS (38)
  - Rhabdomyolysis [Fatal]
  - Blood creatine phosphokinase increased [Unknown]
  - Hypoxia [Unknown]
  - Plasma cell myeloma [Unknown]
  - Chromaturia [Unknown]
  - Pain in extremity [Unknown]
  - Muscular weakness [Unknown]
  - Asthenia [Unknown]
  - Hypertension [Unknown]
  - Hyperlipidaemia [Unknown]
  - Obstructive sleep apnoea syndrome [Unknown]
  - Coronary artery disease [Unknown]
  - Back pain [Unknown]
  - Sciatica [Unknown]
  - Idiopathic pulmonary fibrosis [Unknown]
  - Glucose tolerance impaired [Unknown]
  - Chronic kidney disease [Unknown]
  - Gastrooesophageal reflux disease [Unknown]
  - Erectile dysfunction [Unknown]
  - Pulmonary mass [Unknown]
  - Bundle branch block right [Unknown]
  - Cataract [Unknown]
  - Seasonal allergy [Unknown]
  - Umbilical hernia [Unknown]
  - Scoliosis [Unknown]
  - Neuropathy peripheral [Unknown]
  - Weight decreased [Unknown]
  - Hot flush [Unknown]
  - Osteoporosis [Unknown]
  - Headache [Unknown]
  - Pain [Unknown]
  - Diarrhoea [Unknown]
  - Ligament sprain [Unknown]
  - Hypophosphataemia [Unknown]
  - Insomnia [Unknown]
  - Hypokalaemia [Unknown]
  - Constipation [Unknown]
  - Gout [Unknown]

NARRATIVE: CASE EVENT DATE: 20231113
